FAERS Safety Report 24653443 (Version 1)
Quarter: 2024Q4

REPORT INFORMATION
  Report Type: Report from Study
  Country: AU (occurrence: AU)
  Receive Date: 20241122
  Receipt Date: 20241122
  Transmission Date: 20250114
  Serious: Yes (Other)
  Sender: REGENERON
  Company Number: AU-BAYER-2024A164419

PATIENT
  Age: 75 Year
  Sex: Female

DRUGS (1)
  1. EYLEA [Suspect]
     Active Substance: AFLIBERCEPT
     Indication: Neovascular age-related macular degeneration
     Dosage: UNK UNK, Q6WK, SOLUTION FOR INJECTION, 40 MG/ML

REACTIONS (5)
  - Blindness transient [Recovered/Resolved]
  - Visual impairment [Not Recovered/Not Resolved]
  - Headache [Recovered/Resolved]
  - Eye pain [Not Recovered/Not Resolved]
  - Vision blurred [Recovered/Resolved]
